FAERS Safety Report 9939468 (Version 1)
Quarter: 2014Q1

REPORT INFORMATION
  Report Type: Report from Study
  Country: US (occurrence: US)
  Receive Date: 20140303
  Receipt Date: 20140303
  Transmission Date: 20141002
  Serious: No
  Sender: FDA-Public Use
  Company Number: US-ABBVIE-13P-163-1035684-00

PATIENT
  Age: 49 Year
  Sex: Female

DRUGS (15)
  1. HUMIRA [Suspect]
     Indication: COLITIS ULCERATIVE
     Dates: start: 20130108
  2. IMURAN [Concomitant]
     Indication: COLITIS ULCERATIVE
     Dosage: 50 MG X 3 DAILY= 150 MG DAILY
  3. KEPPRA [Concomitant]
     Indication: CONVULSION
     Route: 048
  4. TOPAMAX [Concomitant]
     Indication: CONVULSION
     Dosage: 225 MG DAILY
  5. CYMBALTA [Concomitant]
     Indication: DEPRESSION
  6. SYNTHROID [Concomitant]
     Indication: HYPOTHYROIDISM
     Dosage: 75 MCG DAILY
  7. KCL [Concomitant]
     Indication: NUTRITIONAL SUPPLEMENTATION
  8. VITAMIN D [Concomitant]
     Indication: NUTRITIONAL SUPPLEMENTATION
     Dosage: 1000 IU DAILY
  9. BLACK COHASH [Concomitant]
     Indication: HORMONE REPLACEMENT THERAPY
     Dosage: 200 MG DAILY
  10. APRISO [Concomitant]
     Indication: DIARRHOEA
  11. FOLIC ACID [Concomitant]
     Indication: PRODUCT USED FOR UNKNOWN INDICATION
  12. PHENERGAN [Concomitant]
     Indication: NAUSEA
  13. LORAZEPAM [Concomitant]
     Indication: CONVULSION
  14. HYDROCODONE [Concomitant]
     Indication: PAIN
     Dosage: 10/325
  15. MORPHINE [Concomitant]
     Indication: PRODUCT USED FOR UNKNOWN INDICATION
     Dosage: AT NIGHT AS REQUIRED

REACTIONS (4)
  - Injection site pain [Recovering/Resolving]
  - Nausea [Recovering/Resolving]
  - Vomiting [Recovering/Resolving]
  - Fatigue [Recovering/Resolving]
